FAERS Safety Report 12737693 (Version 1)
Quarter: 2016Q3

REPORT INFORMATION
  Report Type: Spontaneous
  Country: US (occurrence: US)
  Receive Date: 20160912
  Receipt Date: 20160912
  Transmission Date: 20161109
  Serious: Yes (Hospitalization, Disabling)
  Sender: FDA-Public Use
  Company Number: None

PATIENT
  Age: 44 Year
  Sex: Female
  Weight: 88 kg

DRUGS (1)
  1. TRIPLE COMPOUNDED ANESTHETIC CREAM [Suspect]
     Active Substance: BENZOCAINE\LIDOCAINE HYDROCHLORIDE\TETRACAINE
     Indication: PRURITUS
     Dosage: OTHER STRENGTH:;OTHER DOSE:;OTHER FREQUENCY:NO LABELED USE;OTHER ROUTE:
     Route: 061
     Dates: start: 20160714

REACTIONS (6)
  - Chest discomfort [None]
  - Tachycardia [None]
  - Muscle spasms [None]
  - Muscle twitching [None]
  - Physical product label issue [None]
  - Chills [None]

NARRATIVE: CASE EVENT DATE: 20160714
